FAERS Safety Report 25326520 (Version 1)
Quarter: 2025Q2

REPORT INFORMATION
  Report Type: Spontaneous
  Country: US (occurrence: US)
  Receive Date: 20250516
  Receipt Date: 20250516
  Transmission Date: 20250716
  Serious: No
  Sender: SANOFI AVENTIS
  Company Number: US-SA-2025SA139877

PATIENT
  Sex: Female
  Weight: 87.27 kg

DRUGS (2)
  1. DUPIXENT [Suspect]
     Active Substance: DUPILUMAB
     Indication: Nasal polyps
     Dosage: 300 MG, QOW
     Route: 058
     Dates: start: 202303, end: 202504
  2. HYDROCORTISONE [Concomitant]
     Active Substance: HYDROCORTISONE

REACTIONS (5)
  - Atrophic glossitis [Recovered/Resolved]
  - Irritability [Recovered/Resolved]
  - Swollen tongue [Recovered/Resolved]
  - Glossitis [Recovered/Resolved]
  - Eczema [Recovered/Resolved]
